FAERS Safety Report 20369463 (Version 1)
Quarter: 2022Q1

REPORT INFORMATION
  Report Type: Spontaneous
  Country: NL (occurrence: NL)
  Receive Date: 20220124
  Receipt Date: 20220124
  Transmission Date: 20220423
  Serious: Yes (Disabling)
  Sender: FDA-Public Use
  Company Number: None

PATIENT
  Age: 56 Year
  Sex: Female
  Weight: 76 kg

DRUGS (2)
  1. CISPLATIN [Suspect]
     Active Substance: CISPLATIN
     Indication: Neoplasm malignant
     Dosage: DURING 1 DAY; 1 DF; CISPLATINE INFOPL CONC 1MG/ML / BRAND NAME NOT SPECIFIED
     Dates: start: 20210108, end: 20210109
  2. PEMETREXED [Concomitant]
     Active Substance: PEMETREXED
     Dosage: MG IS UNKNOWN TO ME, IT WAS GIVEN AT THE SAME TIME AS THE CYSPLATIN; THERAPY START AND END DATE: ASK

REACTIONS (1)
  - Thrombosis [Recovering/Resolving]

NARRATIVE: CASE EVENT DATE: 20210110
